FAERS Safety Report 7588676-1 (Version None)
Quarter: 2011Q3

REPORT INFORMATION
  Report Type: 
  Country: None (occurrence: None)
  Receive Date: 20110705
  Receipt Date: 20110622
  Transmission Date: 20111222
  Serious: Yes (Other)
  Sender: FDA-Public Use
  Company Number: US-ELI_LILLY_AND_COMPANY-US201106008855

PATIENT
  Sex: Male

DRUGS (1)
  1. FORTEO [Suspect]
     Indication: OSTEOPOROSIS
     Dosage: UNK UNK, UNKNOWN
     Route: 065
     Dates: start: 20101101, end: 20110501

REACTIONS (5)
  - COLONOSCOPY [None]
  - HERNIA REPAIR [None]
  - ANAL CANCER [None]
  - POLYP [None]
  - HAEMORRHOIDS [None]
